FAERS Safety Report 16783760 (Version 1)
Quarter: 2019Q3

REPORT INFORMATION
  Report Type: Report from Study
  Country: None (occurrence: IL)
  Receive Date: 20190908
  Receipt Date: 20190908
  Transmission Date: 20191005
  Serious: Yes (Hospitalization)
  Sender: FDA-Public Use
  Company Number: IL-ABBVIE-18K-082-2412372-00

PATIENT
  Sex: Female

DRUGS (1)
  1. HUMIRA [Suspect]
     Active Substance: ADALIMUMAB
     Indication: CROHN^S DISEASE
     Route: 058
     Dates: start: 20150521

REACTIONS (4)
  - Exposure during pregnancy [Unknown]
  - Product storage error [Unknown]
  - Ovarian cyst [Unknown]
  - Live birth [Unknown]

NARRATIVE: CASE EVENT DATE: 2018
